FAERS Safety Report 22123037 (Version 4)
Quarter: 2024Q3

REPORT INFORMATION
  Report Type: Spontaneous
  Country: US (occurrence: US)
  Receive Date: 20230322
  Receipt Date: 20240924
  Transmission Date: 20241016
  Serious: No
  Sender: LUPIN
  Company Number: US-LUPIN PHARMACEUTICALS INC.-2023-02181

PATIENT

DRUGS (2)
  1. ALBUTEROL SULFATE [Suspect]
     Active Substance: ALBUTEROL SULFATE
     Indication: Product used for unknown indication
     Dosage: UNK
  2. ALBUTEROL SULFATE [Suspect]
     Active Substance: ALBUTEROL SULFATE
     Dosage: UNK (2 PUFFS)
     Dates: start: 20240111

REACTIONS (5)
  - Therapeutic product ineffective [Unknown]
  - Product substitution issue [Unknown]
  - Device deposit issue [Unknown]
  - Product use issue [Unknown]
  - Device delivery system issue [Unknown]
